FAERS Safety Report 5385662-7 (Version None)
Quarter: 2007Q3

REPORT INFORMATION
  Report Type: 
  Country: None (occurrence: None)
  Receive Date: 20070712
  Receipt Date: 20070702
  Transmission Date: 20080115
  Serious: Yes (Other)
  Sender: FDA-Public Use
  Company Number: US-PFIZER INC-2005068169

PATIENT
  Sex: Female
  Weight: 59.9 kg

DRUGS (9)
  1. BEXTRA [Suspect]
     Indication: FIBROMYALGIA
     Route: 048
     Dates: start: 20020101, end: 20030301
  2. BEXTRA [Suspect]
     Indication: INFLAMMATION
  3. VIOXX [Suspect]
  4. ALEVE [Concomitant]
  5. TENORMIN [Concomitant]
  6. TRAMADOL HCL [Concomitant]
  7. NEXIUM [Concomitant]
  8. SKELAXIN [Concomitant]
  9. ZOLOFT [Concomitant]

REACTIONS (3)
  - AMNESIA [None]
  - CEREBROVASCULAR ACCIDENT [None]
  - NERVE INJURY [None]
